FAERS Safety Report 5251305-6 (Version None)
Quarter: 2007Q1

REPORT INFORMATION
  Report Type: 
  Country: None (occurrence: None)
  Receive Date: 20070228
  Receipt Date: 20070222
  Transmission Date: 20070707
  Serious: Yes (Life-Threatening)
  Sender: FDA-Public Use
  Company Number: JP-JNJFOC-20070205479

PATIENT
  Sex: Male
  Weight: 65 kg

DRUGS (6)
  1. REMICADE [Suspect]
     Indication: CROHN'S DISEASE
     Route: 042
  2. PENTASA [Suspect]
     Indication: CROHN'S DISEASE
     Route: 048
  3. ENSURE [Suspect]
     Indication: NUTRITIONAL SUPPORT
     Route: 048
  4. MIYA BM [Suspect]
     Indication: FLATULENCE
     Route: 048
  5. LENDORMIN [Suspect]
     Indication: INSOMNIA
     Route: 048
  6. POSTERISAN [Suspect]
     Indication: ANAL INFLAMMATION

REACTIONS (1)
  - NEOPLASM MALIGNANT [None]
